FAERS Safety Report 4497993-3 (Version None)
Quarter: 2004Q4

REPORT INFORMATION
  Report Type: 
  Country: None (occurrence: None)
  Receive Date: 20041109
  Receipt Date: 20041109
  Transmission Date: 20050328
  Serious: Yes (Hospitalization)
  Sender: FDA-Public Use
  Company Number: None

PATIENT
  Age: 85 Year
  Sex: Male
  Weight: 71.2147 kg

DRUGS (15)
  1. PERCOCET [Suspect]
     Indication: PAIN
     Dosage: 1  TAB EVERY 6 H ORAL
     Route: 048
     Dates: start: 20040907, end: 20040911
  2. ACETIC ACID W/ALUM ACET [Concomitant]
  3. MENTHOL 2/METHYL SALICYLATE [Concomitant]
  4. GABAPENTIN [Concomitant]
  5. OMEPRAZOLE [Concomitant]
  6. PSYLLIUM [Concomitant]
  7. INJ CLINIC GOSERELIN [Concomitant]
  8. ALENDRONATE SODIUM [Concomitant]
  9. CLOTRIMAZOLE [Concomitant]
  10. VENLAFAXINE HCL [Concomitant]
  11. DOCUSATE [Concomitant]
  12. MILK OF MAGNESIA TAB [Concomitant]
  13. OXYCODONE HCL [Concomitant]
  14. ACETAM [Concomitant]
  15. METOCLOPRAMIDE HCL [Concomitant]

REACTIONS (6)
  - BACK PAIN [None]
  - CONSTIPATION [None]
  - DRUG INEFFECTIVE [None]
  - FLATULENCE [None]
  - LOOSE STOOLS [None]
  - THERAPY NON-RESPONDER [None]
